FAERS Safety Report 21450171 (Version 1)
Quarter: 2022Q4

REPORT INFORMATION
  Report Type: Report from Study
  Country: HU (occurrence: TR)
  Receive Date: 20221013
  Receipt Date: 20221013
  Transmission Date: 20230113
  Serious: Yes (Other)
  Sender: FDA-Public Use
  Company Number: HU-BAYER-2022A140327

PATIENT
  Age: 54 Year
  Sex: Female

DRUGS (2)
  1. GLUCOBAY [Suspect]
     Active Substance: ACARBOSE
     Indication: Diabetes mellitus
  2. ENBREL [Suspect]
     Active Substance: ETANERCEPT
     Indication: Ankylosing spondylitis

REACTIONS (14)
  - Myocardial infarction [Unknown]
  - Injection site pain [Unknown]
  - Hyperhidrosis [Unknown]
  - Diabetes mellitus [Unknown]
  - Injection site pruritus [Unknown]
  - Back pain [Unknown]
  - Tachycardia [Unknown]
  - Injection site swelling [Unknown]
  - Pain [Unknown]
  - Memory impairment [Unknown]
  - Flatulence [None]
  - Suspected counterfeit product [Unknown]
  - Anxiety [Unknown]
  - Nervousness [Unknown]

NARRATIVE: CASE EVENT DATE: 20070101
